FAERS Safety Report 21403103 (Version 1)
Quarter: 2022Q4

REPORT INFORMATION
  Report Type: Report from Study
  Country: US (occurrence: US)
  Receive Date: 20221003
  Receipt Date: 20221003
  Transmission Date: 20230112
  Serious: Yes (Other)
  Sender: FDA-Public Use
  Company Number: US-ViiV Healthcare Limited-US2022GSK140493

PATIENT

DRUGS (6)
  1. CABOTEGRAVIR\RILPIVIRINE [Suspect]
     Active Substance: CABOTEGRAVIR\RILPIVIRINE
     Indication: HIV infection
     Dosage: ONE-TIME LOADING
     Route: 030
  2. CABOTEGRAVIR\RILPIVIRINE [Suspect]
     Active Substance: CABOTEGRAVIR\RILPIVIRINE
     Dosage: MONTHLY MAINTENANCE DOSING
     Route: 030
  3. CABOTEGRAVIR\RILPIVIRINE [Suspect]
     Active Substance: CABOTEGRAVIR\RILPIVIRINE
  4. EMTRICITABINE\TENOFOVIR ALAFENAMIDE FUMARATE [Concomitant]
     Active Substance: EMTRICITABINE\TENOFOVIR ALAFENAMIDE FUMARATE
     Indication: HIV infection
     Dosage: UNK
     Route: 048
  5. DOLUTEGRAVIR [Concomitant]
     Active Substance: DOLUTEGRAVIR
     Indication: HIV infection
     Dosage: UNK
     Route: 048
  6. CABOTEGRAVIR\RILPIVIRINE [Concomitant]
     Active Substance: CABOTEGRAVIR\RILPIVIRINE
     Indication: HIV infection
     Dosage: UNK
     Route: 048

REACTIONS (4)
  - Pathogen resistance [Unknown]
  - Virologic failure [Recovered/Resolved]
  - Viral mutation identified [Unknown]
  - Treatment failure [Unknown]
